FAERS Safety Report 6788855-7 (Version None)
Quarter: 2010Q2

REPORT INFORMATION
  Report Type: 
  Country: None (occurrence: None)
  Receive Date: 20100623
  Receipt Date: 20080612
  Transmission Date: 20101027
  Serious: No
  Sender: FDA-Public Use
  Company Number: US-PFIZER INC-2008033485

PATIENT
  Sex: Female

DRUGS (2)
  1. XALATAN [Suspect]
     Indication: GLAUCOMA
     Route: 031
     Dates: start: 20080219, end: 20080222
  2. CARDIOVASCULAR SYSTEM DRUGS [Concomitant]
     Route: 048

REACTIONS (3)
  - EYE IRRITATION [None]
  - EYELID OEDEMA [None]
  - EYELIDS PRURITUS [None]
